FAERS Safety Report 5244379-X (Version None)
Quarter: 2007Q1

REPORT INFORMATION
  Report Type: 
  Country: None (occurrence: None)
  Receive Date: 20070222
  Receipt Date: 20070212
  Transmission Date: 20070707
  Serious: Yes (Hospitalization)
  Sender: FDA-Public Use
  Company Number: FR-GILEAD-2007-0011275

PATIENT
  Age: 43 Year
  Sex: Male

DRUGS (5)
  1. TRUVADA [Suspect]
     Route: 048
     Dates: start: 20060701, end: 20061028
  2. NORVIR [Suspect]
     Route: 048
     Dates: start: 20060701, end: 20061103
  3. REYATAZ [Suspect]
     Route: 048
     Dates: start: 20060701, end: 20061103
  4. PIRILENE [Concomitant]
     Indication: TUBERCULOSIS
     Dates: start: 20060914
  5. RIMIFON [Concomitant]
     Indication: TUBERCULOSIS
     Dates: start: 20060914

REACTIONS (2)
  - RENAL FAILURE ACUTE [None]
  - TUBERCULOSIS [None]
